FAERS Safety Report 4710969-3 (Version None)
Quarter: 2005Q3

REPORT INFORMATION
  Report Type: 
  Country: None (occurrence: None)
  Receive Date: 20050711
  Receipt Date: 20050704
  Transmission Date: 20060218
  Serious: Yes (Other)
  Sender: FDA-Public Use
  Company Number: PHNR2005AU01039

PATIENT
  Age: 48 Year
  Sex: Female

DRUGS (2)
  1. TEGRETOL [Suspect]
     Indication: PAIN
     Dosage: 100 MG, QD
     Route: 048
     Dates: start: 20041119, end: 20041119
  2. COUMADIN [Concomitant]
     Route: 048

REACTIONS (3)
  - BRADYCARDIA [None]
  - HYPOTENSION [None]
  - RASH [None]
